FAERS Safety Report 4677804-3 (Version None)
Quarter: 2005Q2

REPORT INFORMATION
  Report Type: 
  Country: None (occurrence: None)
  Receive Date: 20050531
  Receipt Date: 20050520
  Transmission Date: 20051028
  Serious: Yes (Other)
  Sender: FDA-Public Use
  Company Number: US-JNJFOC-20050505289

PATIENT
  Sex: Male

DRUGS (1)
  1. VIADUR [Suspect]
     Indication: PROSTATE CANCER
     Route: 058

REACTIONS (3)
  - ARTHRALGIA [None]
  - BLINDNESS [None]
  - FATIGUE [None]
